FAERS Safety Report 9867522 (Version 1)
Quarter: 2014Q1

REPORT INFORMATION
  Report Type: Spontaneous
  Country: US (occurrence: US)
  Receive Date: 20140204
  Receipt Date: 20140204
  Transmission Date: 20141002
  Serious: No
  Sender: FDA-Public Use
  Company Number: US-GALDERMA-US13000616

PATIENT
  Age: 53 Year
  Sex: Female

DRUGS (5)
  1. EPIDUO (ADAPALENE, BENZOYL PEROXIDE) GEL 0.1% / 2.5% [Suspect]
     Indication: ACNE CYSTIC
     Route: 061
     Dates: start: 20130219, end: 20130220
  2. ADDERALL [Concomitant]
     Indication: ANXIETY
     Route: 048
  3. DOXYCYCLINE [Concomitant]
     Indication: ROSACEA
     Route: 048
     Dates: end: 20130221
  4. CETAPHIL GENTLE SKIN CLEANSER [Concomitant]
     Indication: THERAPEUTIC SKIN CARE TOPICAL
     Route: 061
  5. CETAPHIL DAILY FACIAL MOISTURIZER SPF15 [Concomitant]
     Indication: DRY SKIN PROPHYLAXIS
     Route: 061
     Dates: start: 2010

REACTIONS (4)
  - Erythema [Not Recovered/Not Resolved]
  - Blister [Not Recovered/Not Resolved]
  - Sunburn [Not Recovered/Not Resolved]
  - Off label use [Recovered/Resolved]
